FAERS Safety Report 17080648 (Version 1)
Quarter: 2019Q4

REPORT INFORMATION
  Report Type: Spontaneous
  Country: US (occurrence: US)
  Receive Date: 20191029
  Receipt Date: 20191029
  Transmission Date: 20200122
  Serious: No
  Sender: FDA-Public Use
  Company Number: None

PATIENT
  Age: 76 Year
  Sex: Female

DRUGS (8)
  1. FISH OIL [Concomitant]
     Active Substance: FISH OIL
  2. BERBERINE [Concomitant]
     Active Substance: BERBERINE
  3. LOW-DOSE ASPIRIN [Concomitant]
     Active Substance: ASPIRIN
  4. DUREZOL [Suspect]
     Active Substance: DIFLUPREDNATE
     Indication: POSTOPERATIVE CARE
     Dosage: ?          QUANTITY:0.5 % PERCENT;?
     Route: 047
     Dates: start: 20190913, end: 20190913
  5. LOSARTAN POTASSIUM. [Concomitant]
     Active Substance: LOSARTAN POTASSIUM
  6. MULTI VITAMINS [Concomitant]
     Active Substance: VITAMINS
  7. AMLODIPOLINE BESYLATE [Concomitant]
  8. MAGNESIUM [Concomitant]
     Active Substance: MAGNESIUM

REACTIONS (5)
  - Blood pressure increased [None]
  - Feeling hot [None]
  - Dizziness [None]
  - Balance disorder [None]
  - Hypotension [None]

NARRATIVE: CASE EVENT DATE: 20190913
